FAERS Safety Report 4725105-7 (Version None)
Quarter: 2005Q3

REPORT INFORMATION
  Report Type: 
  Country: None (occurrence: None)
  Receive Date: 20050721
  Receipt Date: 20050713
  Transmission Date: 20060218
  Serious: Yes (Other)
  Sender: FDA-Public Use
  Company Number: 2005-07-0831

PATIENT

DRUGS (2)
  1. TEMODAR [Suspect]
     Indication: BRAIN NEOPLASM
     Dosage: ORAL
     Route: 048
  2. . [Concomitant]

REACTIONS (1)
  - PANCREATITIS ACUTE [None]
